FAERS Safety Report 9005455 (Version 1)
Quarter: 2013Q1

REPORT INFORMATION
  Report Type: Spontaneous
  Country: FR (occurrence: FR)
  Receive Date: 20130109
  Receipt Date: 20130109
  Transmission Date: 20140127
  Serious: Yes (Other)
  Sender: FDA-Public Use
  Company Number: FR-ACTELION-A-CH2013-77127

PATIENT
  Age: 14 Year
  Sex: Female

DRUGS (5)
  1. TRACLEER [Suspect]
     Indication: PULMONARY ARTERIAL HYPERTENSION
     Dosage: 90 MG, BID
     Route: 048
  2. TRACLEER [Suspect]
     Dosage: 15.625 MG, BID
     Route: 048
     Dates: start: 200208, end: 200209
  3. TRACLEER [Suspect]
     Dosage: 31.25 MG, BID
     Route: 048
     Dates: start: 200209
  4. ADCIRCA [Suspect]
     Dosage: 40 MG, OD
     Route: 048
     Dates: start: 201205
  5. FLOLAN [Concomitant]
     Dosage: UNK
     Route: 017
     Dates: start: 2002

REACTIONS (3)
  - Drug tolerance decreased [Not Recovered/Not Resolved]
  - Oedema peripheral [Not Recovered/Not Resolved]
  - Flushing [Not Recovered/Not Resolved]
